FAERS Safety Report 19032716 (Version 1)
Quarter: 2021Q1

REPORT INFORMATION
  Report Type: Other
  Country: US (occurrence: US)
  Receive Date: 20210319
  Receipt Date: 20210319
  Transmission Date: 20210420
  Serious: No
  Sender: FDA-Public Use
  Company Number: US-BRECKENRIDGE PHARMACEUTICAL, INC.-2108224

PATIENT

DRUGS (1)
  1. ENTACAVIR [Suspect]
     Active Substance: ENTECAVIR
     Route: 048

REACTIONS (2)
  - Therapeutic product ineffective [None]
  - Drug ineffective [None]
